FAERS Safety Report 22279152 (Version 2)
Quarter: 2023Q2

REPORT INFORMATION
  Report Type: Report from Study
  Country: JP (occurrence: JP)
  Receive Date: 20230503
  Receipt Date: 20230620
  Transmission Date: 20230721
  Serious: Yes (Death)
  Sender: FDA-Public Use
  Company Number: JP-PFIZER INC-PV202300076993

PATIENT
  Age: 89 Year
  Sex: Male
  Weight: 60 kg

DRUGS (9)
  1. LORAZEPAM [Suspect]
     Active Substance: LORAZEPAM
     Indication: Status epilepticus
     Dosage: 4 MG, SINGLE
     Dates: start: 20230121, end: 20230121
  2. LORAZEPAM [Suspect]
     Active Substance: LORAZEPAM
     Dosage: 4 MG, SINGLE
     Dates: start: 20230122, end: 20230122
  3. LORAZEPAM [Suspect]
     Active Substance: LORAZEPAM
     Dosage: 4 MG, SINGLE
     Dates: start: 20230122, end: 20230122
  4. LEVETIRACETAM [Concomitant]
     Active Substance: LEVETIRACETAM
     Indication: Status epilepticus
     Dosage: 500 MG, SINGLE
     Route: 042
     Dates: start: 20230121, end: 20230121
  5. LEVETIRACETAM [Concomitant]
     Active Substance: LEVETIRACETAM
     Dosage: UNK
     Route: 042
     Dates: start: 20230122, end: 20230122
  6. LEVETIRACETAM [Concomitant]
     Active Substance: LEVETIRACETAM
     Dosage: UNK
     Route: 042
     Dates: start: 20230123, end: 20230123
  7. LEVETIRACETAM [Concomitant]
     Active Substance: LEVETIRACETAM
     Dosage: UNK
     Route: 042
     Dates: start: 20230124, end: 20230124
  8. LEVETIRACETAM [Concomitant]
     Active Substance: LEVETIRACETAM
     Dosage: UNK
     Route: 042
     Dates: start: 20230125, end: 20230125
  9. LEVETIRACETAM [Concomitant]
     Active Substance: LEVETIRACETAM
     Dosage: UNK
     Route: 042
     Dates: start: 20230126, end: 20230126

REACTIONS (1)
  - Sepsis [Fatal]

NARRATIVE: CASE EVENT DATE: 20230121
